FAERS Safety Report 4811183-3 (Version None)
Quarter: 2005Q4

REPORT INFORMATION
  Report Type: 
  Country: None (occurrence: None)
  Receive Date: 20051027
  Receipt Date: 20051017
  Transmission Date: 20060501
  Serious: Yes (Other)
  Sender: FDA-Public Use
  Company Number: US-GLAXOSMITHKLINE-A0578377A

PATIENT
  Age: 80 Year
  Sex: Female
  Weight: 122.7 kg

DRUGS (4)
  1. ECOTRIN MAXIMUM STRENGTH TABLETS [Suspect]
     Indication: THROMBOSIS PROPHYLAXIS
     Route: 048
     Dates: start: 19970101, end: 20051013
  2. DIAVAN [Concomitant]
  3. FUROSEMIDE [Concomitant]
  4. GLUCOSAMINE [Concomitant]

REACTIONS (4)
  - GASTRIC ULCER [None]
  - NAUSEA [None]
  - STOMACH DISCOMFORT [None]
  - VERTIGO [None]
